FAERS Safety Report 8024484-5 (Version None)
Quarter: 2012Q1

REPORT INFORMATION
  Report Type: 
  Country: None (occurrence: None)
  Receive Date: 20120103
  Receipt Date: 20111220
  Transmission Date: 20120608
  Serious: No
  Sender: FDA-Public Use
  Company Number: 2011-01332

PATIENT
  Age: 64 Year
  Sex: Female
  Weight: 49.8957 kg

DRUGS (3)
  1. ZICAM COLD REMEDY ORAL MIST [Suspect]
     Indication: NASOPHARYNGITIS
     Dosage: 1 SPRAY TWICE DAILY
     Dates: start: 20111219, end: 20111220
  2. UNKNOWN SUPPLEMENT [Concomitant]
  3. DIGESTIVE ENZYMES [Concomitant]

REACTIONS (4)
  - ANOSMIA [None]
  - AGEUSIA [None]
  - HEART RATE IRREGULAR [None]
  - ANXIETY [None]
